FAERS Safety Report 9131820 (Version 1)
Quarter: 2013Q1

REPORT INFORMATION
  Report Type: Report from Study
  Country: US (occurrence: US)
  Receive Date: 20130301
  Receipt Date: 20130301
  Transmission Date: 20140127
  Serious: No
  Sender: FDA-Public Use
  Company Number: US-MYLANLABS-2012S1015750

PATIENT
  Age: 19 Year
  Sex: Male

DRUGS (1)
  1. AMNESTEEM CAPSULES [Suspect]
     Indication: ACNE
     Dates: start: 20120601, end: 20120727

REACTIONS (2)
  - Back pain [Recovered/Resolved]
  - Ocular hyperaemia [Recovered/Resolved]
